FAERS Safety Report 13335204 (Version 1)
Quarter: 2017Q1

REPORT INFORMATION
  Report Type: Spontaneous
  Country: US (occurrence: US)
  Receive Date: 20170315
  Receipt Date: 20170315
  Transmission Date: 20170428
  Serious: Yes (Hospitalization)
  Sender: FDA-Public Use
  Company Number: US-CIPLA LTD.-2016US14030

PATIENT

DRUGS (11)
  1. LORAZEPAM. [Suspect]
     Active Substance: LORAZEPAM
     Dosage: 1 MG/KG/H
     Route: 041
  2. GEMCITABINE [Suspect]
     Active Substance: GEMCITABINE\GEMCITABINE HYDROCHLORIDE
     Indication: SMALL CELL LUNG CANCER
     Dosage: UNK, FIRST DOSE
     Route: 065
  3. GEMCITABINE [Suspect]
     Active Substance: GEMCITABINE\GEMCITABINE HYDROCHLORIDE
     Dosage: 1250 MG/M2, SECOND DOSE
     Route: 065
  4. LORAZEPAM. [Suspect]
     Active Substance: LORAZEPAM
     Dosage: TITRATED UP TO 2 MG/KG/H
     Route: 041
  5. PENTOBARBITAL. [Suspect]
     Active Substance: PENTOBARBITAL
     Dosage: 4 MG/KG PER DAY
     Route: 065
  6. CARBOPLATIN. [Suspect]
     Active Substance: CARBOPLATIN
     Indication: SMALL CELL LUNG CANCER
     Dosage: UNK, FIRST DOSE
     Route: 065
  7. PHENYTOIN. [Suspect]
     Active Substance: PHENYTOIN
     Indication: STATUS EPILEPTICUS
     Dosage: 1600 MG, UNK (LOADING DOSE)
     Route: 065
  8. PENTOBARBITAL. [Suspect]
     Active Substance: PENTOBARBITAL
     Indication: STATUS EPILEPTICUS
     Dosage: 20 MG/KG, UNK
     Route: 040
  9. CARBOPLATIN. [Suspect]
     Active Substance: CARBOPLATIN
     Dosage: 60 MG/M2, SECOND DOSE
     Route: 065
  10. LORAZEPAM. [Suspect]
     Active Substance: LORAZEPAM
     Indication: STATUS EPILEPTICUS
     Dosage: 10 MG/KG, (LOADING DOSE)
     Route: 042
  11. PHENYTOIN. [Suspect]
     Active Substance: PHENYTOIN
     Dosage: 400 MG PER DAY
     Route: 065

REACTIONS (3)
  - Drug ineffective [Unknown]
  - Posterior reversible encephalopathy syndrome [Recovered/Resolved]
  - Hypomagnesaemia [Recovered/Resolved]
